FAERS Safety Report 8418009-X (Version None)
Quarter: 2012Q2

REPORT INFORMATION
  Report Type: 
  Country: None (occurrence: None)
  Receive Date: 20120607
  Receipt Date: 20120530
  Transmission Date: 20120825
  Serious: Yes (Other)
  Sender: FDA-Public Use
  Company Number: US-JNJFOC-20120507919

PATIENT
  Sex: Male
  Weight: 81.65 kg

DRUGS (2)
  1. LYRICA [Concomitant]
     Indication: PAIN
     Route: 065
     Dates: start: 20120229
  2. NUCYNTA ER [Suspect]
     Indication: ANALGESIC THERAPY
     Route: 048
     Dates: start: 20120321

REACTIONS (1)
  - HYPERTENSION [None]
